FAERS Safety Report 8221784-0 (Version None)
Quarter: 2012Q1

REPORT INFORMATION
  Report Type: 
  Country: None (occurrence: None)
  Receive Date: 20120320
  Receipt Date: 20120320
  Transmission Date: 20120608
  Serious: Yes (Life-Threatening, Disabling, Other)
  Sender: FDA-Public Use
  Company Number: None

PATIENT
  Age: 60 Year
  Sex: Female
  Weight: 70.306 kg

DRUGS (4)
  1. VICKS COUGH SYRUP [Concomitant]
  2. CYMBALTA [Suspect]
  3. DEXTROMETHORPHAN -DM- IN MUCINEX [Concomitant]
  4. CEPACOL [Concomitant]

REACTIONS (14)
  - MALAISE [None]
  - ANXIETY [None]
  - COUGH [None]
  - DISORIENTATION [None]
  - AGITATION [None]
  - FALL [None]
  - DRUG INTERACTION [None]
  - PRODUCT LABEL ISSUE [None]
  - DIZZINESS [None]
  - NASOPHARYNGITIS [None]
  - EMOTIONAL DISORDER [None]
  - OROPHARYNGEAL PAIN [None]
  - PULMONARY CONGESTION [None]
  - VIRAL INFECTION [None]
